FAERS Safety Report 23232197 (Version 1)
Quarter: 2023Q4

REPORT INFORMATION
  Report Type: Spontaneous
  Country: US (occurrence: US)
  Receive Date: 20231127
  Receipt Date: 20231127
  Transmission Date: 20240110
  Serious: No
  Sender: FDA-Public Use
  Company Number: US-INCYTE CORPORATION-2023IN012215

PATIENT

DRUGS (2)
  1. JAKAFI [Suspect]
     Active Substance: RUXOLITINIB
     Indication: Polycythaemia vera
     Dosage: 10 MILLIGRAM, BID
     Route: 048
     Dates: start: 202311
  2. FONDAPARINUX [Concomitant]
     Active Substance: FONDAPARINUX
     Indication: Product used for unknown indication
     Dosage: 0.6 MILLILITER
     Route: 065

REACTIONS (1)
  - Fatigue [Unknown]
